FAERS Safety Report 6208251-0 (Version None)
Quarter: 2009Q2

REPORT INFORMATION
  Report Type: 
  Country: None (occurrence: None)
  Receive Date: 20090522
  Receipt Date: 20090518
  Transmission Date: 20091009
  Serious: Yes (Life-Threatening)
  Sender: FDA-Public Use
  Company Number: ADE2009-0623

PATIENT
  Age: 48 Year
  Weight: 100 kg

DRUGS (3)
  1. CIPROFLOXACIN [Suspect]
     Indication: KIDNEY INFECTION
     Dosage: 250MG - BID - ORAL
     Route: 048
     Dates: start: 20090417, end: 20090418
  2. ACETAMINOPHEN W/ CODEINE [Concomitant]
  3. TRIMETHOPRIM [Concomitant]

REACTIONS (4)
  - BLISTER [None]
  - EYE DISORDER [None]
  - LIP BLISTER [None]
  - OROPHARYNGEAL BLISTERING [None]
